FAERS Safety Report 7461411-3 (Version None)
Quarter: 2011Q2

REPORT INFORMATION
  Report Type: 
  Country: None (occurrence: None)
  Receive Date: 20110428
  Receipt Date: 20110131
  Transmission Date: 20111010
  Serious: Yes (Other)
  Sender: FDA-Public Use
  Company Number: 2011GW000072

PATIENT
  Age: 43 Year
  Sex: Male

DRUGS (2)
  1. ZYCLARA [Suspect]
     Indication: ACTINIC KERATOSIS
     Dosage: 3.75 PCT;QD;TOP
     Route: 061
     Dates: start: 20110102
  2. ZOCOR [Concomitant]

REACTIONS (8)
  - EYE IRRITATION [None]
  - MALAISE [None]
  - ERYTHEMA MULTIFORME [None]
  - STOMATITIS [None]
  - PRURITUS [None]
  - APPLICATION SITE INFLAMMATION [None]
  - SKIN LESION [None]
  - HYPOPHAGIA [None]
